FAERS Safety Report 8201442-9 (Version None)
Quarter: 2012Q1

REPORT INFORMATION
  Report Type: 
  Country: None (occurrence: None)
  Receive Date: 20120312
  Receipt Date: 20120227
  Transmission Date: 20120608
  Serious: Yes (Hospitalization)
  Sender: FDA-Public Use
  Company Number: US-ACTELION-A-NJ2012-60497

PATIENT

DRUGS (8)
  1. COUMADIN [Concomitant]
  2. TRACLEER [Suspect]
     Indication: PULMONARY ARTERIAL HYPERTENSION
     Dosage: 125 MG, BID
     Route: 048
     Dates: start: 20080901
  3. LANOXIN [Concomitant]
  4. LASIX [Concomitant]
  5. PLAQUENIL [Concomitant]
  6. EPOPROSTENOL SODIUM [Suspect]
     Indication: PULMONARY ARTERIAL HYPERTENSION
     Dosage: 89 NG/KG, PER MIN
     Route: 041
     Dates: start: 20110110
  7. ALDACTONE [Concomitant]
  8. REVATIO [Concomitant]

REACTIONS (7)
  - GOITRE [None]
  - NAUSEA [None]
  - WEIGHT DECREASED [None]
  - DEHYDRATION [None]
  - DIARRHOEA [None]
  - RENAL FAILURE ACUTE [None]
  - VOMITING [None]
